FAERS Safety Report 4317264-5 (Version None)
Quarter: 2004Q1

REPORT INFORMATION
  Report Type: 
  Country: None (occurrence: None)
  Receive Date: 20040312
  Receipt Date: 20040301
  Transmission Date: 20041129
  Serious: Yes (Hospitalization, Other)
  Sender: FDA-Public Use
  Company Number: HQWYE457601MAR04

PATIENT
  Age: 80 Year
  Sex: Male

DRUGS (6)
  1. AMIODARONE HCL [Suspect]
     Dosage: 200 MG 5X PER 1 WK ORAL
     Route: 048
     Dates: end: 20030604
  2. ALDACTONE [Suspect]
     Dosage: 0.5 IU 1X PER 1 DAY ORAL
     Route: 048
     Dates: end: 20030604
  3. BENAZEPRIL HCL [Suspect]
     Dosage: 1 DF DAILY ORAL
     Route: 048
     Dates: end: 20030604
  4. LASIX [Concomitant]
  5. PREVISCAN (FLUINDIONE) [Concomitant]
  6. PRAVASTATIN SODIUM [Concomitant]

REACTIONS (5)
  - ATRIOVENTRICULAR BLOCK [None]
  - BRADYCARDIA [None]
  - DRUG INTERACTION [None]
  - HYPERKALAEMIA [None]
  - RENAL FAILURE [None]
